FAERS Safety Report 8457013 (Version 2)
Quarter: 2016Q1

REPORT INFORMATION
  Report Type: Report from Study
  Country: DK (occurrence: DK)
  Receive Date: 20120313
  Receipt Date: 20160225
  Transmission Date: 20160526
  Serious: Yes (Other)
  Sender: FDA-Public Use
  Company Number: PHHO2012DK003689

PATIENT
  Age: 63 Year
  Sex: Female

DRUGS (1)
  1. CGS 20267 [Suspect]
     Active Substance: LETROZOLE
     Indication: BREAST CANCER
     Dosage: 2.5 MG, QD
     Route: 048
     Dates: start: 20110124, end: 201110

REACTIONS (1)
  - Ovarian cyst [Recovered/Resolved with Sequelae]

NARRATIVE: CASE EVENT DATE: 20111001
